FAERS Safety Report 7115458 (Version 8)
Quarter: 2015Q2

REPORT INFORMATION
  Report Type: Spontaneous
  Country: CA (occurrence: CA)
  Receive Date: 20090915
  Receipt Date: 20150427
  Transmission Date: 20150821
  Serious: Yes (Other)
  Sender: FDA-Public Use
  Company Number: CA-ROCHE-GNE290243

PATIENT
  Age: 43 Year
  Sex: Female
  Weight: 153.18 kg

DRUGS (5)
  1. XOLAIR [Suspect]
     Active Substance: OMALIZUMAB
     Dosage: 375 MG, Q2W
     Route: 058
     Dates: start: 20110517
  2. XOLAIR [Suspect]
     Active Substance: OMALIZUMAB
     Dosage: 375 MG, Q2W
     Route: 058
     Dates: start: 20090902
  3. SYMBICORT [Concomitant]
     Active Substance: BUDESONIDE\FORMOTEROL FUMARATE DIHYDRATE
     Indication: PRODUCT USED FOR UNKNOWN INDICATION
  4. SALBUTAMOL [Concomitant]
     Active Substance: ALBUTEROL
  5. XOLAIR [Suspect]
     Active Substance: OMALIZUMAB
     Indication: ASTHMA
     Dosage: 375 MG, Q2W
     Route: 058
     Dates: start: 20081107

REACTIONS (8)
  - Contusion [Unknown]
  - Wound infection [Recovering/Resolving]
  - Animal scratch [Unknown]
  - Osteomyelitis [Unknown]
  - Wound [Recovering/Resolving]
  - Fatigue [Unknown]
  - Localised infection [Recovering/Resolving]
  - Anaemia [Unknown]

NARRATIVE: CASE EVENT DATE: 201205
